FAERS Safety Report 6100100-4 (Version None)
Quarter: 2009Q1

REPORT INFORMATION
  Report Type: 
  Country: None (occurrence: None)
  Receive Date: 20090226
  Receipt Date: 20090211
  Transmission Date: 20090719
  Serious: Yes (Other)
  Sender: FDA-Public Use
  Company Number: DSA_33190_2009

PATIENT
  Sex: Female

DRUGS (26)
  1. LORAZEPAM [Suspect]
     Indication: DRUG USE FOR UNKNOWN INDICATION
     Dosage: SEE IMAGE
     Route: 048
     Dates: start: 20081016, end: 20081201
  2. LORAZEPAM [Suspect]
     Indication: DRUG USE FOR UNKNOWN INDICATION
     Dosage: SEE IMAGE
     Route: 048
     Dates: start: 20081202, end: 20081204
  3. LORAZEPAM [Suspect]
     Indication: DRUG USE FOR UNKNOWN INDICATION
     Dosage: SEE IMAGE
     Route: 048
     Dates: start: 20081210, end: 20081210
  4. LORAZEPAM [Suspect]
     Indication: DRUG USE FOR UNKNOWN INDICATION
     Dosage: SEE IMAGE
     Route: 048
     Dates: start: 20081211, end: 20081215
  5. LORAZEPAM [Suspect]
     Indication: DRUG USE FOR UNKNOWN INDICATION
     Dosage: SEE IMAGE
     Route: 048
     Dates: start: 20081219, end: 20081221
  6. LORAZEPAM [Suspect]
     Indication: DRUG USE FOR UNKNOWN INDICATION
     Dosage: SEE IMAGE
     Route: 048
     Dates: start: 20081222, end: 20090105
  7. LORAZEPAM [Suspect]
     Indication: DRUG USE FOR UNKNOWN INDICATION
     Dosage: SEE IMAGE
     Route: 048
     Dates: start: 20090106, end: 20090107
  8. ABILIFY [Suspect]
     Indication: DRUG USE FOR UNKNOWN INDICATION
     Dosage: (30 MG QD), (20 MG QD), (15 MG QD), (10 MG QD), (15 MG QD)
     Dates: start: 20081016, end: 20081017
  9. ABILIFY [Suspect]
     Indication: DRUG USE FOR UNKNOWN INDICATION
     Dosage: (30 MG QD), (20 MG QD), (15 MG QD), (10 MG QD), (15 MG QD)
     Dates: start: 20081018, end: 20081021
  10. ABILIFY [Suspect]
     Indication: DRUG USE FOR UNKNOWN INDICATION
     Dosage: (30 MG QD), (20 MG QD), (15 MG QD), (10 MG QD), (15 MG QD)
     Dates: start: 20081022, end: 20081027
  11. ABILIFY [Suspect]
     Indication: DRUG USE FOR UNKNOWN INDICATION
     Dosage: (30 MG QD), (20 MG QD), (15 MG QD), (10 MG QD), (15 MG QD)
     Dates: start: 20081028, end: 20081126
  12. ABILIFY [Suspect]
     Indication: DRUG USE FOR UNKNOWN INDICATION
     Dosage: (30 MG QD), (20 MG QD), (15 MG QD), (10 MG QD), (15 MG QD)
     Dates: start: 20081127, end: 20081128
  13. HALDOL [Suspect]
     Indication: DRUG USE FOR UNKNOWN INDICATION
     Dosage: (5 MG QD ORAL), (5 MG QD ORAL), (10 MG QD ORAL),
     Route: 048
     Dates: start: 20081031, end: 20081104
  14. HALDOL [Suspect]
     Indication: DRUG USE FOR UNKNOWN INDICATION
     Dosage: (5 MG QD ORAL), (5 MG QD ORAL), (10 MG QD ORAL),
     Route: 048
     Dates: start: 20081105, end: 20081218
  15. HALDOL [Suspect]
     Indication: DRUG USE FOR UNKNOWN INDICATION
     Dosage: (5 MG QD ORAL), (5 MG QD ORAL), (10 MG QD ORAL),
     Route: 048
     Dates: start: 20081219, end: 20090107
  16. LEPONEX (LEPONEX) (NOT SPECIFIED) [Suspect]
     Indication: DRUG USE FOR UNKNOWN INDICATION
     Dosage: SEE IMAGE
     Route: 048
     Dates: start: 20081203, end: 20081203
  17. LEPONEX (LEPONEX) (NOT SPECIFIED) [Suspect]
     Indication: DRUG USE FOR UNKNOWN INDICATION
     Dosage: SEE IMAGE
     Route: 048
     Dates: start: 20081204, end: 20081204
  18. LEPONEX (LEPONEX) (NOT SPECIFIED) [Suspect]
     Indication: DRUG USE FOR UNKNOWN INDICATION
     Dosage: SEE IMAGE
     Route: 048
     Dates: start: 20081205, end: 20081205
  19. LEPONEX (LEPONEX) (NOT SPECIFIED) [Suspect]
     Indication: DRUG USE FOR UNKNOWN INDICATION
     Dosage: SEE IMAGE
     Route: 048
     Dates: start: 20081206, end: 20081206
  20. LEPONEX (LEPONEX) (NOT SPECIFIED) [Suspect]
     Indication: DRUG USE FOR UNKNOWN INDICATION
     Dosage: SEE IMAGE
     Route: 048
     Dates: start: 20081207, end: 20081207
  21. LEPONEX (LEPONEX) (NOT SPECIFIED) [Suspect]
     Indication: DRUG USE FOR UNKNOWN INDICATION
     Dosage: SEE IMAGE
     Route: 048
     Dates: start: 20081208, end: 20081209
  22. LEPONEX (LEPONEX) (NOT SPECIFIED) [Suspect]
     Indication: DRUG USE FOR UNKNOWN INDICATION
     Dosage: SEE IMAGE
     Route: 048
     Dates: start: 20081210, end: 20081210
  23. LEPONEX (LEPONEX) (NOT SPECIFIED) [Suspect]
     Indication: DRUG USE FOR UNKNOWN INDICATION
     Dosage: SEE IMAGE
     Route: 048
     Dates: start: 20081211, end: 20081211
  24. PALIPERIDONE [Concomitant]
  25. FERROUS SULFATE TAB [Concomitant]
  26. MAGNESIOCARD /00669702/ [Concomitant]

REACTIONS (25)
  - AGITATION [None]
  - ALANINE AMINOTRANSFERASE DECREASED [None]
  - BLOOD BILIRUBIN DECREASED [None]
  - BLOOD CREATINE PHOSPHOKINASE DECREASED [None]
  - BLOOD LACTATE DEHYDROGENASE DECREASED [None]
  - BLOOD UREA DECREASED [None]
  - DELIRIUM [None]
  - DISORIENTATION [None]
  - DRUG INTERACTION [None]
  - DRUG WITHDRAWAL SYNDROME [None]
  - DYSPHORIA [None]
  - EOSINOPHIL COUNT INCREASED [None]
  - FATIGUE [None]
  - FEELING ABNORMAL [None]
  - FLIGHT OF IDEAS [None]
  - GAIT DISTURBANCE [None]
  - HAEMATOCRIT INCREASED [None]
  - HALLUCINATIONS, MIXED [None]
  - HYPOPHAGIA [None]
  - HYPOREFLEXIA [None]
  - MIOSIS [None]
  - PLATELET COUNT INCREASED [None]
  - THINKING ABNORMAL [None]
  - VERTIGO [None]
  - WEIGHT DECREASED [None]
